FAERS Safety Report 20747857 (Version 2)
Quarter: 2022Q2

REPORT INFORMATION
  Report Type: Spontaneous
  Country: SE (occurrence: SE)
  Receive Date: 20220425
  Receipt Date: 20220511
  Transmission Date: 20220721
  Serious: Yes (Death, Hospitalization, Other)
  Sender: FDA-Public Use
  Company Number: SE-TEVA-2022-SE-2009637

PATIENT
  Age: 62 Year
  Sex: Male
  Weight: 125.7 kg

DRUGS (7)
  1. LENALIDOMIDE [Suspect]
     Active Substance: LENALIDOMIDE
     Indication: B-cell lymphoma
     Route: 065
     Dates: start: 20211123
  2. SIMVASTATIN [Suspect]
     Active Substance: SIMVASTATIN
     Indication: Product used for unknown indication
     Route: 048
  3. RITUXIMAB [Suspect]
     Active Substance: RITUXIMAB
     Indication: Follicular lymphoma
     Dosage: SINGLE
     Route: 042
     Dates: start: 20211123, end: 20211123
  4. METFORMIN HYDROCHLORIDE [Suspect]
     Active Substance: METFORMIN HYDROCHLORIDE
     Indication: Product used for unknown indication
     Route: 048
  5. ENALAPRIL [Suspect]
     Active Substance: ENALAPRIL
     Indication: Product used for unknown indication
     Route: 048
     Dates: start: 201206
  6. ACIKLOVIR [Concomitant]
     Indication: Product used for unknown indication
     Route: 065
     Dates: start: 20211123
  7. SITAGLIPTIN [Concomitant]
     Active Substance: SITAGLIPTIN
     Indication: Product used for unknown indication
     Route: 065
     Dates: start: 202106

REACTIONS (7)
  - Abdominal pain [Fatal]
  - Cytokine release syndrome [Fatal]
  - Colitis [Fatal]
  - Dehydration [Fatal]
  - Malignant neoplasm progression [Fatal]
  - Pneumocystis jirovecii infection [Fatal]
  - Diarrhoea [Fatal]

NARRATIVE: CASE EVENT DATE: 20220111
